FAERS Safety Report 18605455 (Version 1)
Quarter: 2020Q4

REPORT INFORMATION
  Report Type: Spontaneous
  Country: DE (occurrence: DE)
  Receive Date: 20201211
  Receipt Date: 20201211
  Transmission Date: 20210114
  Serious: Yes (Congenital Anomaly, Other)
  Sender: FDA-Public Use
  Company Number: DE-TORRENT-00019089

PATIENT
  Age: 1 Day
  Sex: Female
  Weight: 3 kg

DRUGS (1)
  1. VENLAFAXINE [Suspect]
     Active Substance: VENLAFAXINE HYDROCHLORIDE
     Indication: DEPRESSION
     Dosage: 150 [MG/D (BIS 37.5) ]/ DOSAGE REDUCTION FROM 150MG TO 37.5MG/D STEP BY STEP
     Route: 064
     Dates: start: 20191102, end: 20200724

REACTIONS (9)
  - Large for dates baby [Unknown]
  - Bradycardia neonatal [Recovered/Resolved]
  - Neonatal hypoxia [Recovered/Resolved]
  - Pulmonary artery stenosis congenital [Unknown]
  - Cardiac hypertrophy [Recovering/Resolving]
  - Neonatal respiratory distress syndrome [Recovered/Resolved]
  - Selective eating disorder [Recovered/Resolved]
  - Foetal exposure during pregnancy [Unknown]
  - Atrial septal defect [Not Recovered/Not Resolved]

NARRATIVE: CASE EVENT DATE: 20191102
